FAERS Safety Report 11812840 (Version 1)
Quarter: 2015Q4

REPORT INFORMATION
  Report Type: Spontaneous
  Country: JP (occurrence: JP)
  Receive Date: 20151209
  Receipt Date: 20151209
  Transmission Date: 20160305
  Serious: Yes (Death, Hospitalization, Other)
  Sender: FDA-Public Use
  Company Number: PHHY2015JP157900

PATIENT
  Sex: Female

DRUGS (5)
  1. PACLITAXEL. [Suspect]
     Active Substance: PACLITAXEL
     Indication: GASTRIC CANCER
     Dosage: 50 MG/M2, UNK
     Route: 065
  2. TEGAFUR [Suspect]
     Active Substance: TEGAFUR
     Indication: GASTRIC CANCER
     Route: 065
  3. GIMERACIL [Suspect]
     Active Substance: GIMERACIL
     Indication: GASTRIC CANCER
     Route: 065
  4. CISPLATIN. [Suspect]
     Active Substance: CISPLATIN
     Indication: GASTRIC CANCER
     Route: 065
  5. OTERACIL [Suspect]
     Active Substance: OTERACIL
     Indication: GASTRIC CANCER
     Route: 065

REACTIONS (6)
  - Meningitis [Fatal]
  - Pericardial effusion [Unknown]
  - Cardiac tamponade [Unknown]
  - Neuropathy peripheral [Unknown]
  - Maternal exposure during pregnancy [Unknown]
  - Headache [Unknown]
